FAERS Safety Report 18235155 (Version 1)
Quarter: 2020Q3

REPORT INFORMATION
  Report Type: Spontaneous
  Country: US (occurrence: US)
  Receive Date: 20200905
  Receipt Date: 20200905
  Transmission Date: 20201103
  Serious: Yes (Life-Threatening, Hospitalization, Other)
  Sender: FDA-Public Use
  Company Number: US-LUPIN PHARMACEUTICALS INC.-2020-05397

PATIENT
  Age: 35 Year
  Sex: Female

DRUGS (2)
  1. QUETIAPINE FUMARATE. [Suspect]
     Active Substance: QUETIAPINE FUMARATE
     Indication: PRODUCT USED FOR UNKNOWN INDICATION
     Dosage: 36 GRAM, SINGLE (IN TOTAL)
     Route: 048
  2. LAMOTRIGINE. [Concomitant]
     Active Substance: LAMOTRIGINE
     Indication: PRODUCT USED FOR UNKNOWN INDICATION
     Dosage: UNK
     Route: 065

REACTIONS (8)
  - Circulatory collapse [Recovering/Resolving]
  - Encephalopathy [Recovering/Resolving]
  - Pleural effusion [Recovering/Resolving]
  - White blood cell count increased [Recovered/Resolved]
  - Status epilepticus [Recovering/Resolving]
  - Intentional overdose [Unknown]
  - Electrocardiogram QT prolonged [Recovering/Resolving]
  - Drug level increased [Recovering/Resolving]
